FAERS Safety Report 5141500-9 (Version None)
Quarter: 2006Q4

REPORT INFORMATION
  Report Type: 
  Country: None (occurrence: None)
  Receive Date: 20061101
  Receipt Date: 20060727
  Transmission Date: 20070319
  Serious: Yes (Death, Hospitalization)
  Sender: FDA-Public Use
  Company Number: NL-AVENTIS-200617925GDDC

PATIENT
  Age: 69 Year
  Sex: Male

DRUGS (11)
  1. DOCETAXEL [Suspect]
     Indication: NON-SMALL CELL LUNG CANCER
     Route: 042
     Dates: start: 20060719, end: 20060719
  2. CARBOPLATIN [Suspect]
     Indication: NON-SMALL CELL LUNG CANCER
     Route: 042
     Dates: start: 20060719, end: 20060719
  3. CODE UNBROKEN [Suspect]
     Indication: NON-SMALL CELL LUNG CANCER
     Dosage: DOSE: 2 CAPSULES TWICE DAILY
     Route: 048
     Dates: start: 20060719, end: 20060719
  4. BISOPROL [Concomitant]
  5. RAMIPRIL [Concomitant]
  6. PLAVIX [Concomitant]
  7. AUGMENTIN                          /00756801/ [Concomitant]
  8. CIPROFLOXACIN HCL [Concomitant]
  9. HEPARIN [Concomitant]
  10. DIGOXIN [Concomitant]
  11. PANTOPRAZOLE SODIUM [Concomitant]

REACTIONS (6)
  - ATRIAL FIBRILLATION [None]
  - DUODENAL ULCER HAEMORRHAGE [None]
  - LEUKOPENIA [None]
  - MELAENA [None]
  - PANCYTOPENIA [None]
  - THROMBOSIS [None]
